FAERS Safety Report 6039532-1 (Version None)
Quarter: 2009Q1

REPORT INFORMATION
  Report Type: 
  Country: None (occurrence: None)
  Receive Date: 20090116
  Receipt Date: 20090109
  Transmission Date: 20090719
  Serious: Yes (Other)
  Sender: FDA-Public Use
  Company Number: US-ASTRAZENECA-2009UW00755

PATIENT
  Age: 52 Year
  Sex: Male
  Weight: 110.9 kg

DRUGS (10)
  1. SYMBICORT [Suspect]
     Indication: ASTHMA
     Route: 055
     Dates: start: 20081104
  2. OMNARIS NASAL SPRAY [Suspect]
     Indication: ASTHMA
     Dates: start: 20081104, end: 20081112
  3. ASPIRIN [Concomitant]
  4. OMEPRAZOLE [Concomitant]
  5. AMITRIPTYLINE HYDROCHLORIDE [Concomitant]
  6. DILANTIN [Concomitant]
  7. CHOLESTEROL AND TRIGLYCERIDE REDUCERS [Concomitant]
  8. MULTI-VITAMINS [Concomitant]
  9. FISH OIL [Concomitant]
  10. ADVAIR DISKUS 100/50 [Concomitant]

REACTIONS (4)
  - ANGIOEDEMA [None]
  - NASAL INFLAMMATION [None]
  - PERIORBITAL OEDEMA [None]
  - SWOLLEN TONGUE [None]
